FAERS Safety Report 19630244 (Version 1)
Quarter: 2021Q3

REPORT INFORMATION
  Report Type: Spontaneous
  Country: CA (occurrence: CA)
  Receive Date: 20210729
  Receipt Date: 20210729
  Transmission Date: 20211014
  Serious: Yes (Hospitalization)
  Sender: FDA-Public Use
  Company Number: CA-TEVA-2021-CA-1936417

PATIENT
  Age: 65 Year
  Sex: Female

DRUGS (16)
  1. ATROVENT [Suspect]
     Active Substance: IPRATROPIUM BROMIDE
     Dosage: 20 MICROGRAM DAILY;
     Route: 065
  2. ALVESCO [Suspect]
     Active Substance: CICLESONIDE
     Indication: PRODUCT USED FOR UNKNOWN INDICATION
     Route: 055
  3. ALVESCO [Suspect]
     Active Substance: CICLESONIDE
     Route: 065
  4. ALVESCO [Suspect]
     Active Substance: CICLESONIDE
     Route: 065
  5. ALVESCO [Suspect]
     Active Substance: CICLESONIDE
     Dosage: 400 MICROGRAM DAILY;
     Route: 065
  6. RUPATADINE FUMARATE [Suspect]
     Active Substance: RUPATADINE FUMARATE
     Indication: MULTIPLE ALLERGIES
     Route: 065
  7. ALVESCO [Suspect]
     Active Substance: CICLESONIDE
     Dosage: 200 MICROGRAM DAILY;
     Route: 065
  8. BUDESONIDE/FORMOTEROL FUMARATE [Suspect]
     Active Substance: BUDESONIDE\FORMOTEROL FUMARATE
     Indication: PRODUCT USED FOR UNKNOWN INDICATION
     Route: 065
  9. NUCALA [Suspect]
     Active Substance: MEPOLIZUMAB
     Indication: ASTHMA
     Route: 065
  10. ZITHROMAX [Suspect]
     Active Substance: AZITHROMYCIN DIHYDRATE
     Indication: PRODUCT USED FOR UNKNOWN INDICATION
     Route: 065
  11. SALBUTAMOL [Suspect]
     Active Substance: ALBUTEROL
     Indication: PRODUCT USED FOR UNKNOWN INDICATION
     Route: 065
  12. NUCALA [Suspect]
     Active Substance: MEPOLIZUMAB
     Route: 042
  13. SALBUTAMOL [Suspect]
     Active Substance: ALBUTEROL
     Route: 065
  14. ATROVENT [Suspect]
     Active Substance: IPRATROPIUM BROMIDE
     Indication: PRODUCT USED FOR UNKNOWN INDICATION
     Dosage: 40 MICROGRAM DAILY;
     Route: 065
  15. FLUTICASONE/SALMETEROL [Suspect]
     Active Substance: FLUTICASONE PROPIONATE\SALMETEROL XINAFOATE
     Indication: PRODUCT USED FOR UNKNOWN INDICATION
     Route: 065
  16. BUDESONIDE/FORMOTEROL FUMARATE [Suspect]
     Active Substance: BUDESONIDE\FORMOTEROL FUMARATE
     Dosage: 4 DOSAGE FORMS DAILY;
     Route: 065

REACTIONS (4)
  - Asthma [Unknown]
  - Wheezing [Unknown]
  - Therapeutic product effect incomplete [Unknown]
  - Dyspnoea [Unknown]
